FAERS Safety Report 23790092 (Version 1)
Quarter: 2024Q2

REPORT INFORMATION
  Report Type: Spontaneous
  Country: US (occurrence: US)
  Receive Date: 20240426
  Receipt Date: 20240426
  Transmission Date: 20240716
  Serious: No
  Sender: FDA-Public Use
  Company Number: US-Covis Pharma GmbH-2024COV00442

PATIENT
  Sex: Male

DRUGS (1)
  1. OMNARIS [Suspect]
     Active Substance: CICLESONIDE
     Dosage: 2 SPRAYS PER NOSTRIL
     Route: 045

REACTIONS (3)
  - Nasal congestion [Unknown]
  - Product dose omission issue [Unknown]
  - Incorrect dose administered [Unknown]
